FAERS Safety Report 22107982 (Version 3)
Quarter: 2023Q2

REPORT INFORMATION
  Report Type: Report from Study
  Country: US (occurrence: US)
  Receive Date: 20230317
  Receipt Date: 20230420
  Transmission Date: 20230721
  Serious: Yes (Hospitalization, Disabling, Congenital Anomaly, Other)
  Sender: FDA-Public Use
  Company Number: US-UCBSA-2023012883

PATIENT
  Age: 36 Year
  Sex: Female

DRUGS (1)
  1. LEVETIRACETAM [Suspect]
     Active Substance: LEVETIRACETAM
     Indication: Seizure
     Dosage: 1000 MILLIGRAM, 2X/DAY (BID)

REACTIONS (6)
  - Systemic lupus erythematosus [Not Recovered/Not Resolved]
  - Multiple sclerosis [Not Recovered/Not Resolved]
  - Sepsis [Unknown]
  - Surgery [Unknown]
  - Asthenia [Not Recovered/Not Resolved]
  - Physiotherapy [Not Recovered/Not Resolved]

NARRATIVE: CASE EVENT DATE: 20230311
